FAERS Safety Report 7282599-3 (Version None)
Quarter: 2011Q1

REPORT INFORMATION
  Report Type: 
  Country: None (occurrence: None)
  Receive Date: 20110209
  Receipt Date: 20110203
  Transmission Date: 20110831
  Serious: No
  Sender: FDA-Public Use
  Company Number: US-PFIZER INC-2011025471

PATIENT
  Sex: Male

DRUGS (7)
  1. HYDROXYZINE [Concomitant]
     Indication: ANXIETY
     Dosage: UNK
  2. SEROQUEL [Concomitant]
     Dosage: UNK
  3. METHADONE [Concomitant]
     Indication: DRUG ABUSE
     Dosage: UNK
  4. NEURONTIN [Concomitant]
     Dosage: UNK
  5. CEPHALEXIN [Concomitant]
     Dosage: UNK
  6. XANAX [Suspect]
     Indication: ANXIETY
     Dosage: 2 MG, AS NEEDED
     Route: 048
  7. CARBAMAZEPINE [Interacting]
     Indication: DRUG WITHDRAWAL SYNDROME
     Dosage: 200 MG, 2X/DAY
     Route: 048
     Dates: start: 20100901, end: 20101001

REACTIONS (2)
  - DRUG INTERACTION [None]
  - DRUG INEFFECTIVE [None]
